FAERS Safety Report 7801741-6 (Version None)
Quarter: 2011Q4

REPORT INFORMATION
  Report Type: 
  Country: None (occurrence: None)
  Receive Date: 20111007
  Receipt Date: 20110930
  Transmission Date: 20120403
  Serious: Yes (Hospitalization, Other)
  Sender: FDA-Public Use
  Company Number: JP-CEPHALON-2011004835

PATIENT
  Sex: Male
  Weight: 73 kg

DRUGS (12)
  1. ALLOPURINOL [Suspect]
     Route: 048
     Dates: end: 20110904
  2. ALBUMIN (HUMAN) [Concomitant]
     Dates: start: 20110905, end: 20110907
  3. ACYCLOVIR [Suspect]
     Route: 048
     Dates: end: 20110904
  4. CEFEPIME HYDROCHLORIDE [Concomitant]
     Dates: start: 20110905, end: 20110913
  5. LIDOCAINE [Concomitant]
     Dates: start: 20110906, end: 20110906
  6. BENDAMUSTINE HCL [Suspect]
     Indication: EXTRANODAL MARGINAL ZONE B-CELL LYMPHOMA (MALT TYPE)
     Route: 042
     Dates: start: 20110826, end: 20110827
  7. RITUXIMAB [Concomitant]
     Indication: EXTRANODAL MARGINAL ZONE B-CELL LYMPHOMA (MALT TYPE)
     Route: 042
     Dates: start: 20110825, end: 20110825
  8. MAGNESIUM OXIDE [Concomitant]
     Dates: end: 20110904
  9. AMIKACIN [Concomitant]
     Dates: start: 20110905, end: 20110908
  10. SULFAMETHOXAZOLE AND TRIMETHOPRIM [Suspect]
     Route: 048
     Dates: end: 20110904
  11. LANSOPRAZOLE [Suspect]
     Route: 048
     Dates: end: 20110904
  12. NORADRENALIN [Concomitant]
     Dates: start: 20110905, end: 20110908

REACTIONS (13)
  - ELECTROCARDIOGRAM ST SEGMENT ELEVATION [None]
  - ENCEPHALITIS VIRAL [None]
  - ERYTHEMA MULTIFORME [None]
  - SEPSIS [None]
  - ANGINA PECTORIS [None]
  - MYOCARDIAL INFARCTION [None]
  - BLOOD CREATINE PHOSPHOKINASE INCREASED [None]
  - CARDIOMYOPATHY [None]
  - DEHYDRATION [None]
  - PYREXIA [None]
  - VENTRICULAR TACHYARRHYTHMIA [None]
  - FLUID INTAKE REDUCED [None]
  - VENTRICULAR HYPOKINESIA [None]
